FAERS Safety Report 8912611 (Version 3)
Quarter: 2013Q3

REPORT INFORMATION
  Report Type: Report from Study
  Country: US (occurrence: US)
  Receive Date: 20121116
  Receipt Date: 20130715
  Transmission Date: 20140515
  Serious: Yes (Death, Life-Threatening, Hospitalization, Other)
  Sender: FDA-Public Use
  Company Number: US-BRISTOL-MYERS SQUIBB COMPANY-16802662

PATIENT
  Age: 77 Year
  Sex: Male
  Weight: 140.6 kg

DRUGS (1)
  1. IPILIMUMAB [Suspect]
     Indication: MALIGNANT MELANOMA
     Dosage: LAST THERAPY ON 05JUL12,24MAY2012(1430MG)?REMOVED FROM THE PROTOCOL ON 23JUL2012 1320 MG
     Route: 042
     Dates: start: 20120503

REACTIONS (11)
  - Chronic obstructive pulmonary disease [Fatal]
  - Hypotension [Recovering/Resolving]
  - Depressed level of consciousness [Recovering/Resolving]
  - Cardiopulmonary failure [Unknown]
  - Hypopituitarism [Recovered/Resolved]
  - Guillain-Barre syndrome [Recovering/Resolving]
  - Malaise [Not Recovered/Not Resolved]
  - Abdominal pain [Not Recovered/Not Resolved]
  - Colitis [Not Recovered/Not Resolved]
  - Atrial fibrillation [Not Recovered/Not Resolved]
  - Anaemia [Unknown]
